FAERS Safety Report 14638022 (Version 1)
Quarter: 2018Q1

REPORT INFORMATION
  Report Type: Spontaneous
  Country: US (occurrence: US)
  Receive Date: 20180314
  Receipt Date: 20180314
  Transmission Date: 20180509
  Serious: No
  Sender: FDA-Public Use
  Company Number: US-VYERA PHARMACEUTICALS, LLC-2017VYE00051

PATIENT
  Age: 71 Year
  Sex: Female
  Weight: 121.9 kg

DRUGS (22)
  1. METFORMIN [Concomitant]
     Active Substance: METFORMIN HYDROCHLORIDE
  2. GLIMEPIRIDE. [Concomitant]
     Active Substance: GLIMEPIRIDE
  3. LISINOPRIL. [Concomitant]
     Active Substance: LISINOPRIL
  4. LEUCOVORIN. [Concomitant]
     Active Substance: LEUCOVORIN
  5. GABAPENTIN. [Concomitant]
     Active Substance: GABAPENTIN
  6. LANTUS [Concomitant]
     Active Substance: INSULIN GLARGINE
  7. LOSARTAN. [Concomitant]
     Active Substance: LOSARTAN
  8. SIMVASTATIN. [Concomitant]
     Active Substance: SIMVASTATIN
  9. SULFAMETHOXAZOLE [Concomitant]
     Active Substance: SULFAMETHOXAZOLE
  10. IBUPROFEN. [Concomitant]
     Active Substance: IBUPROFEN
  11. JANUVIA [Concomitant]
     Active Substance: SITAGLIPTIN PHOSPHATE
  12. DARAPRIM [Suspect]
     Active Substance: PYRIMETHAMINE
     Dosage: 25 MG, 2X/DAY
     Route: 048
     Dates: start: 20171027
  13. HYDROCHLOROTHIAZIDE. [Concomitant]
     Active Substance: HYDROCHLOROTHIAZIDE
  14. NEXIUM [Concomitant]
     Active Substance: ESOMEPRAZOLE MAGNESIUM
  15. OXYBUTYNIN. [Concomitant]
     Active Substance: OXYBUTYNIN CHLORIDE
  16. VESICARE [Concomitant]
     Active Substance: SOLIFENACIN SUCCINATE
  17. DARAPRIM [Suspect]
     Active Substance: PYRIMETHAMINE
     Indication: EYE INFECTION TOXOPLASMAL
     Dosage: 25 MG, 3X/DAY
     Route: 048
     Dates: start: 20171012, end: 20171012
  18. DARAPRIM [Suspect]
     Active Substance: PYRIMETHAMINE
     Indication: INFECTIVE UVEITIS
     Dosage: 25 MG, 2X/DAY
     Route: 048
     Dates: start: 20171013, end: 20171025
  19. ACTOS [Concomitant]
     Active Substance: PIOGLITAZONE HYDROCHLORIDE
  20. DUREZOL [Concomitant]
     Active Substance: DIFLUPREDNATE
  21. METOPROLOL. [Concomitant]
     Active Substance: METOPROLOL
  22. SULFADIAZINE. [Suspect]
     Active Substance: SULFADIAZINE
     Dosage: UNK

REACTIONS (1)
  - Vomiting [Recovering/Resolving]

NARRATIVE: CASE EVENT DATE: 20171020
